FAERS Safety Report 10588111 (Version 1)
Quarter: 2014Q4

REPORT INFORMATION
  Report Type: Spontaneous
  Country: CN (occurrence: CN)
  Receive Date: 20141117
  Receipt Date: 20141117
  Transmission Date: 20150529
  Serious: Yes (Other)
  Sender: FDA-Public Use
  Company Number: CN-BAYER-2014-166714

PATIENT
  Sex: Female

DRUGS (1)
  1. BUTOCONAZOLE NITRATE. [Suspect]
     Active Substance: BUTOCONAZOLE NITRATE
     Route: 067

REACTIONS (4)
  - Abdominal pain [None]
  - Flatulence [None]
  - Uterine haemorrhage [None]
  - Nausea [None]
